FAERS Safety Report 6567093-7 (Version None)
Quarter: 2010Q1

REPORT INFORMATION
  Report Type: 
  Country: None (occurrence: None)
  Receive Date: 20100128
  Receipt Date: 20100113
  Transmission Date: 20100710
  Serious: Yes (Other)
  Sender: FDA-Public Use
  Company Number: 2010AP000091

PATIENT
  Age: 18 Year

DRUGS (5)
  1. LEVETIRACETAM [Suspect]
  2. DIVALPROEX SODIUM [Suspect]
  3. VALPROATE SODIUM [Suspect]
  4. VALPROIC ACID [Suspect]
  5. DIVALPROEX SODIUM [Suspect]

REACTIONS (2)
  - CONVULSION [None]
  - IRON OVERLOAD [None]
